FAERS Safety Report 6266902-9 (Version None)
Quarter: 2009Q3

REPORT INFORMATION
  Report Type: 
  Country: None (occurrence: None)
  Receive Date: 20090710
  Receipt Date: 20090710
  Transmission Date: 20100115
  Serious: Yes (Other)
  Sender: FDA-Public Use
  Company Number: None

PATIENT
  Sex: Male
  Weight: 115.2136 kg

DRUGS (2)
  1. LISINOPRIL [Suspect]
     Indication: DIABETES MELLITUS
     Dosage: 12.5MG DAILY PO
     Route: 048
     Dates: start: 20081018, end: 20090506
  2. LISINOPRIL [Suspect]
     Indication: PROPHYLAXIS
     Dosage: 12.5MG DAILY PO
     Route: 048
     Dates: start: 20081018, end: 20090506

REACTIONS (6)
  - ARTHRALGIA [None]
  - JOINT SWELLING [None]
  - MOBILITY DECREASED [None]
  - MOVEMENT DISORDER [None]
  - OEDEMA PERIPHERAL [None]
  - X-RAY LIMB ABNORMAL [None]
